FAERS Safety Report 12606815 (Version 2)
Quarter: 2017Q2

REPORT INFORMATION
  Report Type: Spontaneous
  Country: IT (occurrence: IT)
  Receive Date: 20160729
  Receipt Date: 20170612
  Transmission Date: 20170830
  Serious: Yes (Other)
  Sender: FDA-Public Use
  Company Number: IT-SUN PHARMACEUTICAL INDUSTRIES LTD-2015R1-116185

PATIENT
  Age: 69 Year
  Sex: Male

DRUGS (16)
  1. CAPECITABINE. [Suspect]
     Active Substance: CAPECITABINE
     Indication: METASTASES TO LIVER
  2. IRINOTECAN [Suspect]
     Active Substance: IRINOTECAN
     Indication: ADENOCARCINOMA OF COLON
     Dosage: 180MG/M2 ON DAY 1
     Route: 065
     Dates: start: 201201, end: 201301
  3. BEVACIZUMAB [Suspect]
     Active Substance: BEVACIZUMAB
     Indication: ADENOCARCINOMA OF COLON
     Dosage: 7.5 MG ON DAY 1 IN 3-WEEK CYCLES
     Route: 042
     Dates: start: 201106
  4. CETUXIMAB. [Suspect]
     Active Substance: CETUXIMAB
     Indication: ADENOCARCINOMA OF COLON
     Dosage: 400 MG/M2 DAY 1
     Route: 065
     Dates: start: 201201, end: 201201
  5. FLUOROURACIL. [Suspect]
     Active Substance: FLUOROURACIL
     Indication: METASTASES TO LIVER
  6. CALCIUM FOLINAT [Suspect]
     Active Substance: LEUCOVORIN CALCIUM
     Indication: ADENOCARCINOMA OF COLON
     Dosage: 100 MG/M^2 2-HOUR INFUSION BEFORE 5-FU
     Route: 065
     Dates: start: 201201, end: 201301
  7. CALCIUM FOLINAT [Suspect]
     Active Substance: LEUCOVORIN CALCIUM
     Indication: METASTASES TO LIVER
  8. CAPECITABINE. [Suspect]
     Active Substance: CAPECITABINE
     Indication: ADENOCARCINOMA OF COLON
     Dosage: 1000 MG/M2 TWICE DAILY FOR 2 WEEKS IN A 3-WEEK CYCLE
     Route: 048
     Dates: start: 201106
  9. FLUOROURACIL. [Suspect]
     Active Substance: FLUOROURACIL
     Indication: ADENOCARCINOMA OF COLON
     Dosage: 400 MG/M2, IV BOLUS ON DAY 1
     Route: 040
     Dates: start: 201201, end: 201201
  10. FLUOROURACIL. [Suspect]
     Active Substance: FLUOROURACIL
     Indication: METASTASES TO LIVER
  11. IRINOTECAN [Suspect]
     Active Substance: IRINOTECAN
     Indication: METASTASES TO LIVER
  12. OXALIPLATIN. [Suspect]
     Active Substance: OXALIPLATIN
     Indication: ADENOCARCINOMA OF COLON
     Dosage: 130 MG/M2 ON DAY 1 FOR 2 WEEKS IN A 3-WEEK CYCLE
     Route: 042
     Dates: start: 201106
  13. BEVACIZUMAB [Suspect]
     Active Substance: BEVACIZUMAB
     Indication: METASTASES TO LIVER
  14. FLUOROURACIL. [Suspect]
     Active Substance: FLUOROURACIL
     Indication: ADENOCARCINOMA OF COLON
     Dosage: 600 MG/M2 ON DAYS 1 AND 2 EVERY 2 WEEKS
     Route: 065
     Dates: start: 201201, end: 201301
  15. OXALIPLATIN. [Suspect]
     Active Substance: OXALIPLATIN
     Indication: METASTASES TO LIVER
  16. CETUXIMAB. [Suspect]
     Active Substance: CETUXIMAB
     Indication: METASTASES TO LIVER
     Dosage: 250 MG/M2 WEEKLY
     Route: 065
     Dates: start: 201201, end: 201301

REACTIONS (4)
  - Diarrhoea [Unknown]
  - Malignant neoplasm progression [Unknown]
  - Pseudocirrhosis [Unknown]
  - Rash [Unknown]

NARRATIVE: CASE EVENT DATE: 2012
